FAERS Safety Report 6647647-X (Version None)
Quarter: 2010Q1

REPORT INFORMATION
  Report Type: 
  Country: None (occurrence: None)
  Receive Date: 20100323
  Receipt Date: 20100323
  Transmission Date: 20100710
  Serious: Yes (Other)
  Sender: FDA-Public Use
  Company Number: None

PATIENT
  Age: 67 Year
  Sex: Female

DRUGS (2)
  1. DILTIAZEM [Suspect]
     Indication: ATRIAL FIBRILLATION
     Dosage: 20MG BOLUS ONE TIME IV
     Route: 042
     Dates: start: 20100102
  2. SODIUM CHLORIDE [Suspect]
     Dosage: STARTING RUNNING INFUSIONS, UNKNOWN MINUTES IV
     Route: 042

REACTIONS (5)
  - CHILLS [None]
  - INCORRECT DOSE ADMINISTERED [None]
  - INFUSION SITE URTICARIA [None]
  - URTICARIA [None]
  - WRONG TECHNIQUE IN DRUG USAGE PROCESS [None]
